FAERS Safety Report 18709937 (Version 1)
Quarter: 2021Q1

REPORT INFORMATION
  Report Type: Spontaneous
  Country: FR (occurrence: FR)
  Receive Date: 20210106
  Receipt Date: 20210106
  Transmission Date: 20210419
  Serious: Yes (Life-Threatening)
  Sender: FDA-Public Use
  Company Number: FR-BEH-2021126820

PATIENT
  Age: 4 Year
  Sex: Male
  Weight: 4.04 kg

DRUGS (4)
  1. MABTHERA [Concomitant]
     Active Substance: RITUXIMAB
     Dosage: UNK
     Dates: start: 20201221
  2. PRIVIGEN [Suspect]
     Active Substance: HUMAN IMMUNOGLOBULIN G
     Indication: OPSOCLONUS MYOCLONUS
     Dosage: 1G/KG
     Route: 042
     Dates: start: 20201222, end: 20201223
  3. PRIVIGEN [Suspect]
     Active Substance: HUMAN IMMUNOGLOBULIN G
     Dosage: UNK
     Route: 042
     Dates: start: 20201222, end: 20201223
  4. PRIVIGEN [Suspect]
     Active Substance: HUMAN IMMUNOGLOBULIN G
     Dosage: UNK
     Route: 042
     Dates: start: 20201222, end: 20201223

REACTIONS (3)
  - No adverse event [Unknown]
  - Off label use [Unknown]
  - Meningitis aseptic [Recovering/Resolving]

NARRATIVE: CASE EVENT DATE: 20201222
